FAERS Safety Report 6401495-4 (Version None)
Quarter: 2009Q4

REPORT INFORMATION
  Report Type: 
  Country: None (occurrence: None)
  Receive Date: 20091015
  Receipt Date: 20091005
  Transmission Date: 20100525
  Serious: Yes (Hospitalization)
  Sender: FDA-Public Use
  Company Number: JP-JNJFOC-20090903050

PATIENT
  Sex: Female
  Weight: 50 kg

DRUGS (7)
  1. REMICADE [Suspect]
     Dosage: 2ND INFUSION OF A TOTAL OF 2
     Route: 042
     Dates: start: 20090727, end: 20090810
  2. REMICADE [Suspect]
     Indication: RHEUMATOID ARTHRITIS
     Route: 042
     Dates: start: 20090727, end: 20090810
  3. RHEUMATREX [Suspect]
     Indication: RHEUMATOID ARTHRITIS
     Route: 048
  4. FOLIAMIN [Concomitant]
     Indication: PROPHYLAXIS
     Route: 048
  5. SAXIZON [Concomitant]
     Indication: PROPHYLAXIS
  6. GASTER [Concomitant]
     Indication: PROPHYLAXIS
  7. CHLORPHENIRAMINE MALEATE [Concomitant]
     Indication: PROPHYLAXIS

REACTIONS (1)
  - HERPES ZOSTER [None]
